FAERS Safety Report 7456616-1 (Version None)
Quarter: 2011Q2

REPORT INFORMATION
  Report Type: 
  Country: None (occurrence: None)
  Receive Date: 20110503
  Receipt Date: 20110415
  Transmission Date: 20111010
  Serious: Yes (Hospitalization)
  Sender: FDA-Public Use
  Company Number: PHHY2011ZA33312

PATIENT
  Sex: Female

DRUGS (3)
  1. ACLASTA [Suspect]
     Dosage: 5 MG,
     Route: 042
     Dates: start: 20081101
  2. ACLASTA [Suspect]
     Dosage: 5 MG,
     Route: 042
     Dates: start: 20091101
  3. ACLASTA [Suspect]
     Dosage: 5 MG,
     Route: 042
     Dates: start: 20110412

REACTIONS (6)
  - CHRONIC OBSTRUCTIVE PULMONARY DISEASE [None]
  - FEELING ABNORMAL [None]
  - SOMNOLENCE [None]
  - LIMB DISCOMFORT [None]
  - MUSCULAR WEAKNESS [None]
  - BLADDER DISORDER [None]
